FAERS Safety Report 13677875 (Version 1)
Quarter: 2017Q2

REPORT INFORMATION
  Report Type: Spontaneous
  Country: DE (occurrence: DE)
  Receive Date: 20170622
  Receipt Date: 20170622
  Transmission Date: 20170830
  Serious: Yes (Congenital Anomaly)
  Sender: FDA-Public Use
  Company Number: GXKR2017DE003252

PATIENT

DRUGS (10)
  1. VIGANTOLETTEN [Concomitant]
     Active Substance: CHOLECALCIFEROL
     Indication: VITAMIN D DEFICIENCY
     Dosage: MATERNAL DOSE (0.-26.5 GESTATIONAL WEEK): 1000 [I.E./D ]
     Route: 064
     Dates: start: 20160701, end: 20170104
  2. PANTOPRAZOL [Concomitant]
     Active Substance: PANTOPRAZOLE SODIUM
     Indication: PROPHYLAXIS AGAINST GASTROINTESTINAL ULCER
     Dosage: MATERNAL DOSE (0.-26.5 GW): 20 [MG/D ]
     Route: 064
     Dates: start: 20160701, end: 20170104
  3. ASPIRIN. [Concomitant]
     Active Substance: ASPIRIN
     Indication: PRODUCT USED FOR UNKNOWN INDICATION
     Dosage: MATERNAL DOSE (25.6-26.5 GW): 100 [MG/D ]
     Route: 064
     Dates: start: 20161229, end: 20170104
  4. LOSARTAN. [Suspect]
     Active Substance: LOSARTAN
     Indication: RENAL HYPERTENSION
     Dosage: MATERNAL DOSE (0.-20.5 GW): 25 [MG/D ]
     Route: 064
  5. TORASEMIDE [Suspect]
     Active Substance: TORSEMIDE
     Indication: OEDEMA
     Dosage: MATERNAL DOSE (0.-21.3 GW): 5 [MG/D ]/ IF REQUIRED
     Route: 064
     Dates: start: 20160701, end: 20161128
  6. PREDNISOLON [Concomitant]
     Active Substance: PREDNISOLONE
     Indication: ANTI-NEUTROPHIL CYTOPLASMIC ANTIBODY POSITIVE VASCULITIS
     Dosage: MATERNAL DOSE (0.-26.5 GW): 12 MG/DAY; DOSAGE INCREASE FROM 4 TO 12 MG/D
     Route: 064
     Dates: start: 20160701, end: 20170104
  7. VITAMIN B12 [Concomitant]
     Active Substance: CYANOCOBALAMIN
     Indication: VITAMIN B12 DEFICIENCY
     Dosage: MATERNAL DOSE (0-21.3 GW): UNKNOWN
     Route: 064
     Dates: start: 20160701, end: 20161128
  8. CARVEDILOL. [Suspect]
     Active Substance: CARVEDILOL
     Indication: RENAL HYPERTENSION
     Dosage: MATERNAL DOSE (0.-26.5 GW): 50 [MG/D ]/ REDUCED TO 25 MG/D IN WEEK 26 5/7
     Route: 064
     Dates: start: 20160701, end: 20170104
  9. AZATHIOPRINE. [Suspect]
     Active Substance: AZATHIOPRINE
     Indication: ANTI-NEUTROPHIL CYTOPLASMIC ANTIBODY POSITIVE VASCULITIS
     Dosage: MATERNAL DOSE (0.-26.5 GW): 150 [MG/D ]/ 50-0-100 MG/D
     Route: 064
     Dates: start: 20160701, end: 20170104
  10. CELESTAN [Concomitant]
     Active Substance: BETAMETHASONE
     Indication: MATERNAL THERAPY TO ENHANCE FOETAL LUNG MATURITY
     Dosage: MATERNAL DOSE (25.- 26. GW): UNKNOWN
     Route: 064
     Dates: start: 20161229, end: 20161230

REACTIONS (3)
  - Ventricular septal defect [Not Recovered/Not Resolved]
  - Atrial septal defect [Unknown]
  - Right aortic arch [Not Recovered/Not Resolved]

NARRATIVE: CASE EVENT DATE: 20170131
